FAERS Safety Report 9226133 (Version 1)
Quarter: 2013Q2

REPORT INFORMATION
  Report Type: Spontaneous
  Country: US (occurrence: US)
  Receive Date: 20130411
  Receipt Date: 20130411
  Transmission Date: 20140414
  Serious: No
  Sender: FDA-Public Use
  Company Number: US-009507513-1304USA004553

PATIENT
  Age: 56 Year
  Sex: Female

DRUGS (8)
  1. CLARITIN [Suspect]
     Dosage: 1 TABLET BY ORAL ROUTE 1 TIME PER DAY PRN
     Route: 048
     Dates: start: 20130206
  2. PREVACID [Concomitant]
     Dosage: 1 (30MG)TABLET AND PLACED ON TOP OF TONGUE WHERE IT WOULD DISSOLVE, THE SWALLOWED BY ORAL ROUTE QD
     Route: 048
     Dates: start: 20130221
  3. MELOXICAM [Concomitant]
     Dosage: 1 TABLET (15MG) BY ORAL ROUTE ONCE DAILY
     Route: 048
     Dates: start: 20130221
  4. BACLOFEN [Concomitant]
     Dosage: 1 TABLET BY ORAL ROUTE 2 TIMES PER DAY
     Route: 048
     Dates: start: 20130221
  5. ATENOLOL [Concomitant]
     Dosage: 50 MG BY ORAL ROUTE 1 TIME PER DAY
     Route: 048
     Dates: start: 20130206
  6. HYDROCHLOROTHIAZIDE [Concomitant]
     Dosage: 1 TABLET (25 MG) BY ORAL ROUTE ONCE DAILY QD
     Route: 048
     Dates: start: 20130206
  7. PRAVASTATIN SODIUM [Concomitant]
     Dosage: 1TABLET (40MG) BY ORAL ROUTE ONCE DAILY AT BEDTIME
     Route: 048
     Dates: start: 20130206
  8. METFORMIN [Concomitant]
     Dosage: 1 TABLET BY ORAL ROUTE 1 TIME PER DAY
     Route: 048
     Dates: start: 20130206

REACTIONS (2)
  - Tension headache [Unknown]
  - Neck pain [Unknown]
